FAERS Safety Report 4399379-9 (Version None)
Quarter: 2004Q2

REPORT INFORMATION
  Report Type: 
  Country: None (occurrence: None)
  Receive Date: 20040607
  Receipt Date: 20040301
  Transmission Date: 20050107
  Serious: No
  Sender: FDA-Public Use
  Company Number: US-SHR-04-021981

PATIENT
  Sex: Male

DRUGS (1)
  1. CAMPATH [Suspect]
     Dosage: 30 MG SUBCUTANEOUS
     Route: 058
     Dates: start: 20031215

REACTIONS (3)
  - INJECTION SITE ERYTHEMA [None]
  - INJECTION SITE MASS [None]
  - INJECTION SITE PAIN [None]
